FAERS Safety Report 7978471-3 (Version None)
Quarter: 2011Q4

REPORT INFORMATION
  Report Type: 
  Country: None (occurrence: None)
  Receive Date: 20111205
  Receipt Date: 20111125
  Transmission Date: 20120403
  Serious: Yes (Other)
  Sender: FDA-Public Use
  Company Number: 2011SP055458

PATIENT
  Age: 23 Year
  Sex: Female
  Weight: 94 kg

DRUGS (1)
  1. DESOGESTREL AND ETHINYL ESTRADIOL [Suspect]
     Indication: POLYCYSTIC OVARIES
     Dosage: QD;PO
     Route: 048
     Dates: start: 20111123

REACTIONS (7)
  - RETCHING [None]
  - VOMITING [None]
  - PAIN IN EXTREMITY [None]
  - POOR VENOUS ACCESS [None]
  - PAIN [None]
  - INAPPROPRIATE SCHEDULE OF DRUG ADMINISTRATION [None]
  - BLOOD GLUCOSE INCREASED [None]
